FAERS Safety Report 7645296-8 (Version None)
Quarter: 2011Q3

REPORT INFORMATION
  Report Type: 
  Country: None (occurrence: None)
  Receive Date: 20110729
  Receipt Date: 20110714
  Transmission Date: 20111222
  Serious: Yes (Hospitalization)
  Sender: FDA-Public Use
  Company Number: DE-WATSON-2011-10767

PATIENT
  Age: 55 Year
  Sex: Female

DRUGS (2)
  1. CORTISONE ACETATE [Concomitant]
     Indication: PRODUCT USED FOR UNKNOWN INDICATION
  2. ALENDRONATE SODIUM [Suspect]
     Indication: OSTEOPOROSIS
     Dosage: 1 DOSAGE FORM EVERY WEEK
     Route: 048
     Dates: start: 20051101, end: 20091101

REACTIONS (2)
  - OSTEONECROSIS OF JAW [None]
  - FISTULA [None]
